FAERS Safety Report 13129408 (Version 2)
Quarter: 2017Q1

REPORT INFORMATION
  Report Type: Other
  Country: RU (occurrence: RU)
  Receive Date: 20170119
  Receipt Date: 20170119
  Transmission Date: 20170428
  Serious: Yes (Other)
  Sender: FDA-Public Use
  Company Number: RU-LUPIN PHARMACEUTICALS INC.-2017-00304

PATIENT
  Age: 30 Year
  Sex: Male

DRUGS (2)
  1. PERAMPANEL [Interacting]
     Active Substance: PERAMPANEL
     Indication: SEIZURE
     Route: 065
  2. LEVETIRACETAM. [Suspect]
     Active Substance: LEVETIRACETAM
     Indication: SEIZURE
     Route: 065

REACTIONS (2)
  - Drug interaction [Unknown]
  - Hostility [Recovered/Resolved]
